FAERS Safety Report 10524657 (Version 1)
Quarter: 2014Q4

REPORT INFORMATION
  Report Type: Spontaneous
  Country: SE (occurrence: SE)
  Receive Date: 20141017
  Receipt Date: 20141017
  Transmission Date: 20150528
  Serious: Yes (Life-Threatening, Hospitalization, Other)
  Sender: FDA-Public Use
  Company Number: SE-GLAXOSMITHKLINE-SE2014GSK005525

PATIENT
  Age: 90 Year
  Sex: Female

DRUGS (10)
  1. PREDNISOLONE. [Suspect]
     Active Substance: PREDNISOLONE
  2. TROMBYL [Suspect]
     Active Substance: ASPIRIN
     Indication: MYOCARDIAL INFARCTION
     Dosage: 75 MG, QID
     Route: 048
     Dates: start: 20140806, end: 20140811
  3. LEVAXIN [Concomitant]
     Active Substance: LEVOTHYROXINE SODIUM
  4. PANODIL [Concomitant]
     Active Substance: ACETAMINOPHEN
     Indication: PAIN
  5. CLOPIDOGREL [Suspect]
     Active Substance: CLOPIDOGREL BISULFATE
     Indication: MYOCARDIAL INFARCTION
     Dosage: UNK
     Dates: start: 20140806, end: 20140811
  6. SELOKEN [Concomitant]
     Active Substance: METOPROLOL
     Dosage: UNK
  7. ARIXTRA [Suspect]
     Active Substance: FONDAPARINUX SODIUM
     Indication: MYOCARDIAL INFARCTION
     Dosage: 2.5 MG, QD
     Dates: start: 20140806, end: 20140808
  8. SAROTEN [Concomitant]
     Active Substance: AMITRIPTYLINE
  9. BETOLVEX [Concomitant]
     Active Substance: CYANOCOBALAMIN
  10. XERODENT [Concomitant]

REACTIONS (2)
  - Oesophageal candidiasis [Not Recovered/Not Resolved]
  - Cerebral haemorrhage [Not Recovered/Not Resolved]

NARRATIVE: CASE EVENT DATE: 20140811
